FAERS Safety Report 5394171-0 (Version None)
Quarter: 2007Q3

REPORT INFORMATION
  Report Type: 
  Country: None (occurrence: None)
  Receive Date: 20070723
  Receipt Date: 20070320
  Transmission Date: 20080115
  Serious: No
  Sender: FDA-Public Use
  Company Number: A0643914A

PATIENT
  Sex: Female

DRUGS (6)
  1. AVANDIA [Suspect]
     Dosage: 4MG PER DAY
     Route: 048
  2. PRILOSEC [Concomitant]
  3. LIPITOR [Concomitant]
  4. LOPRESSOR [Concomitant]
  5. CAPTOPRIL [Concomitant]
  6. GLUCOTROL XL [Concomitant]

REACTIONS (2)
  - DYSPNOEA [None]
  - PRURITUS [None]
